FAERS Safety Report 22096964 (Version 1)
Quarter: 2023Q1

REPORT INFORMATION
  Report Type: Spontaneous
  Country: FR (occurrence: FJ)
  Receive Date: 20230315
  Receipt Date: 20230315
  Transmission Date: 20230418
  Serious: Yes (Hospitalization)
  Sender: FDA-Public Use
  Company Number: None

PATIENT
  Age: 71 Year
  Sex: Female
  Weight: 40 kg

DRUGS (5)
  1. TYGACIL [Suspect]
     Active Substance: TIGECYCLINE
     Indication: Antibiotic therapy
     Dosage: 50 MG, 2X/DAY (EVERY 12 H)
     Route: 042
     Dates: start: 20221130, end: 20221201
  2. TEMOCILLIN [Suspect]
     Active Substance: TEMOCILLIN
     Indication: Antibiotic therapy
     Dosage: 3 G, 2X/DAY(EVERY 12 H)
     Route: 042
     Dates: start: 20221201, end: 20221208
  3. CEFTRIAXONE [Suspect]
     Active Substance: CEFTRIAXONE
     Indication: Antibiotic therapy
     Dosage: 1 G, DAILY (EVERY 24H)
     Route: 042
     Dates: start: 20221125, end: 20221129
  4. METRONIDAZOLE [Suspect]
     Active Substance: METRONIDAZOLE
     Indication: Antibiotic therapy
     Dosage: 500 MG, 3X/DAY (EVERY 8H)
     Route: 042
     Dates: start: 20221125, end: 20221129
  5. CILASTATIN SODIUM\IMIPENEM [Suspect]
     Active Substance: CILASTATIN SODIUM\IMIPENEM
     Indication: Antibiotic therapy
     Dosage: 500 MG, 4X/DAY (EVERY 6H)
     Route: 042
     Dates: start: 20221208, end: 20221221

REACTIONS (1)
  - Coombs negative haemolytic anaemia [Recovering/Resolving]

NARRATIVE: CASE EVENT DATE: 20230107
